FAERS Safety Report 4337249-2 (Version None)
Quarter: 2004Q2

REPORT INFORMATION
  Report Type: 
  Country: None (occurrence: None)
  Receive Date: 20040408
  Receipt Date: 20040329
  Transmission Date: 20050107
  Serious: Yes (Hospitalization)
  Sender: FDA-Public Use
  Company Number: 04P-066-0255446-00

PATIENT

DRUGS (2)
  1. BIAXIN [Suspect]
     Indication: PYREXIA
     Dosage: 500 MG, 2 IN 1 D, PER ORAL
     Route: 048
  2. ATORVASTATIN [Concomitant]

REACTIONS (3)
  - HAEMODIALYSIS [None]
  - RENAL FAILURE ACUTE [None]
  - RHABDOMYOLYSIS [None]
